FAERS Safety Report 24782932 (Version 1)
Quarter: 2024Q4

REPORT INFORMATION
  Report Type: Spontaneous
  Country: US (occurrence: US)
  Receive Date: 20241227
  Receipt Date: 20241227
  Transmission Date: 20250114
  Serious: Yes (Hospitalization)
  Sender: DR REDDYS
  Company Number: None

PATIENT
  Age: 36 Year
  Sex: Male

DRUGS (5)
  1. TACROLIMUS [Suspect]
     Active Substance: TACROLIMUS
     Indication: Immunosuppressant drug therapy
     Dates: end: 202310
  2. MYCOPHENOLIC ACID [Concomitant]
     Active Substance: MYCOPHENOLIC ACID
     Indication: Immunosuppressant drug therapy
  3. VALTREX [Concomitant]
     Active Substance: VALACYCLOVIR HYDROCHLORIDE
     Indication: Product used for unknown indication
  4. FLUCONAZOLE [Concomitant]
     Active Substance: FLUCONAZOLE
     Indication: Product used for unknown indication
  5. PREDNISONE [Concomitant]
     Active Substance: PREDNISONE
     Indication: Immunosuppressant drug therapy
     Dates: end: 202310

REACTIONS (1)
  - New onset diabetes after transplantation [Unknown]

NARRATIVE: CASE EVENT DATE: 20230101
